FAERS Safety Report 7036769-X (Version None)
Quarter: 2010Q4

REPORT INFORMATION
  Report Type: 
  Country: None (occurrence: None)
  Receive Date: 20101011
  Receipt Date: 20100730
  Transmission Date: 20110411
  Serious: Yes (Hospitalization, Other)
  Sender: FDA-Public Use
  Company Number: US-BAYER-201014198NA

PATIENT
  Age: 35 Year
  Sex: Female
  Weight: 59 kg

DRUGS (11)
  1. YAZ [Suspect]
     Indication: CONTRACEPTION
     Route: 048
     Dates: start: 20060101, end: 20070101
  2. ANTIBIOTICS [Concomitant]
     Route: 065
  3. ASCORBIC ACID [Concomitant]
     Dosage: TAKEN FOR AS LONG AS SHE COULD REMEMBER
     Route: 065
  4. PROVENTAL [Concomitant]
     Route: 065
     Dates: start: 20080801, end: 20091101
  5. NAPROXEN [Concomitant]
     Dosage: TAKEN VARIOUS TIMES
     Route: 065
  6. ELAVIL [Concomitant]
     Indication: IRRITABLE BOWEL SYNDROME
     Route: 065
     Dates: start: 20040101
  7. PRILOSEC NOS [Concomitant]
     Indication: GASTROOESOPHAGEAL REFLUX DISEASE
     Dosage: 1 TO 2 DAILY
     Route: 065
  8. PENTASA [Concomitant]
     Indication: CROHN'S DISEASE
     Dosage: 4-500 MG DAILY
     Route: 065
     Dates: start: 20010101
  9. CETALOPREM [Concomitant]
     Indication: ANXIETY
     Route: 065
     Dates: start: 20090901
  10. VALTREX [Concomitant]
     Indication: ORAL HERPES
     Route: 065
  11. LOESTRIN 1.5/30 [Concomitant]
     Dosage: 24 FE
     Route: 065

REACTIONS (6)
  - ABDOMINAL PAIN [None]
  - ABDOMINAL PAIN UPPER [None]
  - BILIARY COLIC [None]
  - CHOLECYSTITIS CHRONIC [None]
  - CHOLELITHIASIS [None]
  - GALLBLADDER CHOLESTEROLOSIS [None]
